FAERS Safety Report 14653566 (Version 2)
Quarter: 2018Q2

REPORT INFORMATION
  Report Type: Spontaneous
  Country: US (occurrence: US)
  Receive Date: 20180319
  Receipt Date: 20180509
  Transmission Date: 20180711
  Serious: No
  Sender: FDA-Public Use
  Company Number: US-ASTRAZENECA-2018SE30367

PATIENT
  Sex: Female
  Weight: 111.1 kg

DRUGS (2)
  1. BYDUREON [Suspect]
     Active Substance: EXENATIDE
     Indication: TYPE 2 DIABETES MELLITUS
     Route: 058
  2. SULFASALAZINE. [Concomitant]
     Active Substance: SULFASALAZINE
     Indication: COLITIS ULCERATIVE
     Dosage: 500 MG 2 TABS, TWO TIMES A DAY
     Route: 048

REACTIONS (4)
  - Incorrect dose administered [Unknown]
  - Device malfunction [Unknown]
  - Wrong technique in product usage process [Unknown]
  - Overweight [Unknown]
